FAERS Safety Report 8984415 (Version 1)
Quarter: 2012Q4

REPORT INFORMATION
  Report Type: 
  Country: US (occurrence: US)
  Receive Date: 20121226
  Receipt Date: 20121226
  Transmission Date: 20130627
  Serious: Yes (Hospitalization, Other)
  Sender: FDA-Public Use
  Company Number: US-AMGEN-USASP2012082550

PATIENT
  Age: 65 Year
  Sex: Male

DRUGS (1)
  1. ENBREL [Suspect]
     Indication: RHEUMATOID ARTHRITIS
     Dosage: 50 mg, qwk
     Dates: start: 1999, end: 20121209

REACTIONS (9)
  - Colitis ischaemic [Recovered/Resolved]
  - Aortic dissection [Recovered/Resolved]
  - Myocardial infarction [Recovered/Resolved]
  - Aortic aneurysm [Recovered/Resolved]
  - Asthenia [Recovered/Resolved]
  - Arthropathy [Not Recovered/Not Resolved]
  - Weight decreased [Not Recovered/Not Resolved]
  - Arthralgia [Not Recovered/Not Resolved]
  - Injection site haematoma [Recovered/Resolved]
